FAERS Safety Report 16775166 (Version 7)
Quarter: 2020Q3

REPORT INFORMATION
  Report Type: Report from Study
  Country: US (occurrence: US)
  Receive Date: 20190905
  Receipt Date: 20200701
  Transmission Date: 20201102
  Serious: Yes (Other)
  Sender: FDA-Public Use
  Company Number: PHEH2019US036285

PATIENT
  Sex: Female

DRUGS (6)
  1. COSENTYX [Suspect]
     Active Substance: SECUKINUMAB
     Dosage: 300 MG, QW (WEEK 4, LOADING DOSE)
     Route: 058
  2. COSENTYX [Suspect]
     Active Substance: SECUKINUMAB
     Indication: PSORIATIC ARTHROPATHY
     Dosage: 300 MG, QW (WEEK 1, LOADING DOSE)
     Route: 058
  3. COSENTYX [Suspect]
     Active Substance: SECUKINUMAB
     Dosage: 300 MG, QMO (ONCE EVERY 4 WEEKS, MAINTENANCE DOSE)
     Route: 058
  4. COSENTYX [Suspect]
     Active Substance: SECUKINUMAB
     Indication: PSORIASIS
     Dosage: 300 MG, QW (WEEK 0, LOADING DOSE)
     Route: 058
     Dates: start: 20190801
  5. COSENTYX [Suspect]
     Active Substance: SECUKINUMAB
     Dosage: 300 MG, QW (WEEK 2, LOADING DOSE)
     Route: 058
  6. COSENTYX [Suspect]
     Active Substance: SECUKINUMAB
     Dosage: 300 MG, QW (WEEK 3, LOADING DOSE)
     Route: 058

REACTIONS (15)
  - Arthralgia [Recovered/Resolved]
  - Fibromyalgia [Unknown]
  - Product storage error [Unknown]
  - Feeling abnormal [Unknown]
  - Psoriasis [Unknown]
  - Pain [Not Recovered/Not Resolved]
  - Poor peripheral circulation [Unknown]
  - Malaise [Unknown]
  - Product dose omission issue [Unknown]
  - Feeling cold [Unknown]
  - Inflammation [Unknown]
  - Paraesthesia [Unknown]
  - Fatigue [Unknown]
  - Neuropathy peripheral [Unknown]
  - Nasopharyngitis [Unknown]
